FAERS Safety Report 5521568-8 (Version None)
Quarter: 2007Q4

REPORT INFORMATION
  Report Type: 
  Country: None (occurrence: None)
  Receive Date: 20071120
  Receipt Date: 20071119
  Transmission Date: 20080405
  Serious: Yes (Life-Threatening)
  Sender: FDA-Public Use
  Company Number: JP-BAYER-200710865BYL

PATIENT
  Age: 75 Year
  Sex: Male

DRUGS (7)
  1. AVELOX [Suspect]
     Indication: PNEUMONIA
     Dosage: UNIT DOSE: 400 MG
     Route: 048
     Dates: start: 20071114, end: 20071115
  2. MEROPEN [Suspect]
     Indication: PNEUMONIA
     Route: 041
     Dates: start: 20071115, end: 20071115
  3. SEPAMIT [Suspect]
     Indication: HYPERTENSION
     Route: 065
     Dates: start: 20071115
  4. NICARPINE [Concomitant]
     Indication: HYPERTENSION
     Route: 065
     Dates: start: 20071113
  5. NITROGLYCERIN [Concomitant]
     Route: 065
     Dates: start: 20071113
  6. GASTER [Concomitant]
     Indication: PROPHYLAXIS AGAINST GASTROINTESTINAL ULCER
     Route: 048
     Dates: start: 20071113
  7. DILTIAZEM HCL [Concomitant]
     Indication: HYPERTENSION
     Route: 048

REACTIONS (1)
  - LIVER DISORDER [None]
